FAERS Safety Report 21297032 (Version 1)
Quarter: 2022Q3

REPORT INFORMATION
  Report Type: Spontaneous
  Country: IE (occurrence: IE)
  Receive Date: 20220906
  Receipt Date: 20220906
  Transmission Date: 20221027
  Serious: Yes (Other)
  Sender: FDA-Public Use
  Company Number: None

PATIENT
  Age: 72 Year
  Sex: Male

DRUGS (6)
  1. CIPROFLOXACIN [Suspect]
     Active Substance: CIPROFLOXACIN
     Indication: Soft tissue swelling
     Dosage: CIPROFLOXACIN (GENERIC), 500 MG, FREQUENCY TIME-12 HRS, DURATION-8 DAYS
     Dates: start: 20220615, end: 20220622
  2. CIPROFLOXACIN [Suspect]
     Active Substance: CIPROFLOXACIN
     Indication: Infection
  3. ATORVASTATIN [Concomitant]
     Active Substance: ATORVASTATIN
     Indication: Product used for unknown indication
     Dosage: (GENERIC), 10 MG
  4. COMIRNATY [Concomitant]
     Active Substance: TOZINAMERAN
     Indication: COVID-19 immunisation
     Dosage: 2ND BOOSTER
     Dates: start: 20220626
  5. COMIRNATY [Concomitant]
     Active Substance: TOZINAMERAN
     Dosage: BOOSTER
  6. AMLODIPINE BESYLATE\OLMESARTAN MEDOXOMIL [Concomitant]
     Active Substance: AMLODIPINE BESYLATE\OLMESARTAN MEDOXOMIL
     Indication: Product used for unknown indication
     Dosage: 40MG/10MG, FOR ACTIVE INGREDIENT AMLODIPINE BESYLATE THE STRENGTH IS 13.888 MILLIGRAM . FOR ACTIVE I

REACTIONS (1)
  - Atrial fibrillation [Not Recovered/Not Resolved]

NARRATIVE: CASE EVENT DATE: 20220701
